FAERS Safety Report 8400757-9 (Version None)
Quarter: 2012Q2

REPORT INFORMATION
  Report Type: 
  Country: None (occurrence: None)
  Receive Date: 20120531
  Receipt Date: 20120529
  Transmission Date: 20120825
  Serious: Yes (Other)
  Sender: FDA-Public Use
  Company Number: US-MERCK-1205USA00734

PATIENT
  Age: 59 Year
  Sex: Female
  Weight: 65 kg

DRUGS (14)
  1. FOSAMAX [Suspect]
     Route: 048
     Dates: start: 20070101, end: 20090101
  2. EFFEXOR [Concomitant]
     Route: 065
  3. FORTEO [Suspect]
     Route: 065
     Dates: start: 20120226, end: 20120226
  4. CALCIUM (UNSPECIFIED) [Concomitant]
     Route: 065
  5. PREDNISONE [Concomitant]
     Route: 047
  6. HYDROXYCHLOROQUINE SULFATE [Concomitant]
     Route: 065
  7. DUREZOL [Concomitant]
     Route: 065
  8. ACYCLOVIR [Concomitant]
     Route: 065
  9. FORTEO [Suspect]
     Indication: OSTEOPOROSIS
     Route: 065
     Dates: start: 20100512, end: 20111101
  10. MINOCYCLINE [Concomitant]
     Route: 065
  11. ASPIRIN [Concomitant]
     Route: 065
  12. METOPROLOL [Concomitant]
     Route: 065
  13. CYCLOSPORINE [Concomitant]
     Route: 065
  14. PLAQUENIL [Concomitant]
     Indication: ARTHRITIS
     Route: 065

REACTIONS (11)
  - HIP FRACTURE [None]
  - OSTEOARTHRITIS [None]
  - BLOOD CALCIUM INCREASED [None]
  - HERPES ZOSTER [None]
  - CALCINOSIS [None]
  - CONJUNCTIVITIS INFECTIVE [None]
  - DRUG INEFFECTIVE [None]
  - FALL [None]
  - JAW FRACTURE [None]
  - CORNEAL DISORDER [None]
  - HAND FRACTURE [None]
